FAERS Safety Report 8574538-X (Version None)
Quarter: 2012Q3

REPORT INFORMATION
  Report Type: 
  Country: None (occurrence: None)
  Receive Date: 20120806
  Receipt Date: 20120802
  Transmission Date: 20120928
  Serious: Yes (Death)
  Sender: FDA-Public Use
  Company Number: US-TEVA-348132USA

PATIENT
  Sex: Female

DRUGS (9)
  1. OXYCODONE HCL [Concomitant]
  2. ACTIQ [Suspect]
     Indication: CANCER PAIN
     Route: 002
     Dates: start: 20120628
  3. ACYCLOVIR [Concomitant]
  4. DEXILANT [Concomitant]
  5. KLOR-CON [Concomitant]
  6. ZOFRAN [Concomitant]
  7. LOMOTIL [Concomitant]
  8. REGLAN [Concomitant]
  9. ATIVAN [Concomitant]

REACTIONS (1)
  - DIFFUSE LARGE B-CELL LYMPHOMA [None]
